FAERS Safety Report 8105677-5 (Version None)
Quarter: 2012Q1

REPORT INFORMATION
  Report Type: 
  Country: None (occurrence: None)
  Receive Date: 20120201
  Receipt Date: 20120124
  Transmission Date: 20120608
  Serious: Yes (Other)
  Sender: FDA-Public Use
  Company Number: GB-ABBOTT-12P-167-0897888-00

PATIENT
  Age: 4 Year
  Sex: Female

DRUGS (1)
  1. VALPROIC ACID [Suspect]
     Indication: EPILEPSY

REACTIONS (5)
  - VOMITING [None]
  - SOMNOLENCE [None]
  - GAIT DISTURBANCE [None]
  - CONDUCT DISORDER [None]
  - CONVULSION [None]
